FAERS Safety Report 13729387 (Version 1)
Quarter: 2017Q3

REPORT INFORMATION
  Report Type: Spontaneous
  Country: US (occurrence: US)
  Receive Date: 20170707
  Receipt Date: 20170707
  Transmission Date: 20171127
  Serious: No
  Sender: FDA-Public Use
  Company Number: US-JNJFOC-20161221700

PATIENT
  Sex: Female

DRUGS (1)
  1. OXYBUTYNIN HYDROCHLORIDE [Suspect]
     Active Substance: OXYBUTYNIN CHLORIDE
     Indication: URINARY INCONTINENCE
     Dosage: TAKING FROM PAST 4 MONTHS (FROM THE TIME OF THIS REPORT)
     Route: 065

REACTIONS (1)
  - Drug effect incomplete [Unknown]
